FAERS Safety Report 6569957-7 (Version None)
Quarter: 2010Q1

REPORT INFORMATION
  Report Type: 
  Country: None (occurrence: None)
  Receive Date: 20100204
  Receipt Date: 20100129
  Transmission Date: 20100710
  Serious: Yes (Other)
  Sender: FDA-Public Use
  Company Number: US-SANOFI-AVENTIS-2010SA006076

PATIENT
  Age: 74 Year
  Sex: Female

DRUGS (5)
  1. TAXOTERE [Suspect]
     Indication: BREAST CANCER
     Dosage: 65 MG/WEEK FOR THREE WEEKS OUT OF 4 WEEKS
     Route: 051
  2. TAXOTERE [Suspect]
     Dosage: 65 MG/WEEK FOR THREE WEEKS OUT OF 4 WEEKS
     Route: 051
     Dates: start: 20091215, end: 20091215
  3. ALOXI [Concomitant]
     Indication: BREAST CANCER
  4. NEUPOGEN [Concomitant]
     Indication: BREAST CANCER
  5. REGLAN [Concomitant]
     Indication: NAUSEA

REACTIONS (1)
  - UVEITIS [None]
